FAERS Safety Report 4954810-2 (Version None)
Quarter: 2006Q1

REPORT INFORMATION
  Report Type: 
  Country: None (occurrence: None)
  Receive Date: 20060327
  Receipt Date: 20050909
  Transmission Date: 20060701
  Serious: Yes (Hospitalization, Disabling)
  Sender: FDA-Public Use
  Company Number: US-MERCK-0509USA01487

PATIENT
  Age: 63 Year
  Sex: Female
  Weight: 91 kg

DRUGS (7)
  1. VIOXX [Suspect]
     Indication: OSTEOARTHRITIS
     Route: 048
     Dates: start: 20000101, end: 20040611
  2. VIOXX [Suspect]
     Route: 048
     Dates: start: 20000101, end: 20040611
  3. TYLENOL [Concomitant]
     Route: 065
     Dates: start: 19950101, end: 20020101
  4. DARVON [Concomitant]
     Route: 065
  5. COUMADIN [Concomitant]
     Route: 065
  6. ZANTAC [Concomitant]
     Route: 065
  7. ALEVE [Concomitant]
     Route: 065
     Dates: start: 20020101

REACTIONS (11)
  - ANXIETY [None]
  - ATRIAL SEPTAL DEFECT [None]
  - CEREBELLAR INFARCTION [None]
  - CEREBROVASCULAR ACCIDENT [None]
  - DEPRESSION [None]
  - DIZZINESS [None]
  - FATIGUE [None]
  - HAEMATOCHEZIA [None]
  - HYPERTENSION [None]
  - HYPOTENSION [None]
  - ULCER HAEMORRHAGE [None]
